FAERS Safety Report 6733816-7 (Version None)
Quarter: 2010Q2

REPORT INFORMATION
  Report Type: 
  Country: None (occurrence: None)
  Receive Date: 20100518
  Receipt Date: 20100430
  Transmission Date: 20101027
  Serious: Yes (Other)
  Sender: FDA-Public Use
  Company Number: 020751334A

PATIENT
  Age: 62 Year
  Sex: Male

DRUGS (7)
  1. SOFTSOAP NATURALS ANTIBACTERIAL HAND SOAP [Suspect]
     Dosage: 3 PUMPS/SEVERAL TIMES A DAY/TOPICAL
     Route: 061
  2. SALICINUM TABLETS [Concomitant]
  3. POLY MVA [Concomitant]
  4. VITAMIN D3 [Concomitant]
  5. VITAMIN K2 [Concomitant]
  6. VITAMIN C [Concomitant]
  7. ESSIAC HERBAL TEA [Concomitant]

REACTIONS (1)
  - PROSTATE CANCER [None]
